FAERS Safety Report 17880897 (Version 1)
Quarter: 2020Q2

REPORT INFORMATION
  Report Type: Spontaneous
  Country: US (occurrence: US)
  Receive Date: 20200610
  Receipt Date: 20200610
  Transmission Date: 20200714
  Serious: No
  Sender: FDA-Public Use
  Company Number: None

PATIENT
  Age: 60 Year
  Sex: Male
  Weight: 113.5 kg

DRUGS (17)
  1. FENTANYL. [Concomitant]
     Active Substance: FENTANYL
     Dates: start: 20200605, end: 20200605
  2. TRESIBA [Concomitant]
     Active Substance: INSULIN DEGLUDEC
     Dates: start: 20180410
  3. ATORVASTATIN [Concomitant]
     Active Substance: ATORVASTATIN
     Dates: start: 20120721
  4. PREDNISONE. [Concomitant]
     Active Substance: PREDNISONE
     Dates: start: 20190709
  5. NOVOLOG [Concomitant]
     Active Substance: INSULIN ASPART
     Dates: start: 20120721
  6. MIDAZOLAM. [Concomitant]
     Active Substance: MIDAZOLAM
     Dates: start: 20200605, end: 20200605
  7. PROMETHAZINE [Suspect]
     Active Substance: PROMETHAZINE HYDROCHLORIDE
     Indication: VOMITING
     Dosage: ?          OTHER FREQUENCY:ONCE;?
     Route: 051
     Dates: start: 20200605, end: 20200605
  8. CLOPIDOGREL [Concomitant]
     Active Substance: CLOPIDOGREL BISULFATE
     Dates: start: 20200605, end: 20200606
  9. HEPARIN [Concomitant]
     Active Substance: HEPARIN SODIUM
     Dates: start: 20200605, end: 20200605
  10. IOPAMIDOL [Concomitant]
     Active Substance: IOPAMIDOL
     Dates: start: 20200605, end: 20200605
  11. FLUDROCORTISONE [Concomitant]
     Active Substance: FLUDROCORTISONE
     Dates: start: 20200310
  12. ONDANSETRON [Concomitant]
     Active Substance: ONDANSETRON
     Dates: start: 20200605, end: 20200605
  13. NITROGLYCERIN. [Concomitant]
     Active Substance: NITROGLYCERIN
     Dates: start: 20200605, end: 20200605
  14. PROMETHAZINE [Suspect]
     Active Substance: PROMETHAZINE HYDROCHLORIDE
     Indication: NAUSEA
     Dosage: ?          OTHER FREQUENCY:ONCE;?
     Route: 051
     Dates: start: 20200605, end: 20200605
  15. ASPIRIN. [Concomitant]
     Active Substance: ASPIRIN
     Dates: start: 20120721, end: 20200605
  16. ALUMINUM-MAGNESIUM HYDROXIDE-SIMETHECONE [Concomitant]
     Dates: start: 20200605, end: 20200605
  17. TACROLIMUS. [Concomitant]
     Active Substance: TACROLIMUS
     Dates: start: 20200121

REACTIONS (2)
  - Incorrect route of product administration [None]
  - Dysarthria [None]

NARRATIVE: CASE EVENT DATE: 20200605
